FAERS Safety Report 8811101 (Version 1)
Quarter: 2012Q4

REPORT INFORMATION
  Report Type: Spontaneous
  Country: US (occurrence: None)
  Receive Date: 20120924
  Receipt Date: 20120924
  Transmission Date: 20130627
  Serious: Yes (Other)
  Sender: FDA-Public Use
  Company Number: AUR-APL-2012-04032

PATIENT
  Age: 55 Year
  Sex: Male

DRUGS (2)
  1. SERTRALINE (SERTRALINE) (SERTRALINE) [Suspect]
  2. BUPROPION [Suspect]
     Indication: POST-TRAUMATIC STRESS DISORDER

REACTIONS (4)
  - Libido increased [None]
  - Marital problem [None]
  - Erection increased [None]
  - Hypersexuality [None]
